FAERS Safety Report 20714537 (Version 1)
Quarter: 2022Q2

REPORT INFORMATION
  Report Type: Spontaneous
  Country: CA (occurrence: CA)
  Receive Date: 20220415
  Receipt Date: 20220415
  Transmission Date: 20220721
  Serious: Yes (Life-Threatening, Hospitalization, Other)
  Sender: FDA-Public Use
  Company Number: CA-TYCO HEALTHCARE/MALLINCKRODT-T201001623

PATIENT
  Age: 76 Year
  Sex: Female
  Weight: 81.72 kg

DRUGS (13)
  1. ULTRA-TECHNEKOW DTE [Suspect]
     Active Substance: TECHNETIUM TC-99M SODIUM PERTECHNETATE
     Indication: Scan myocardial perfusion
     Dosage: RESTING DOSE AT 07:10
     Route: 042
     Dates: start: 20100602, end: 20100602
  2. ULTRA-TECHNEKOW DTE [Suspect]
     Active Substance: TECHNETIUM TC-99M SODIUM PERTECHNETATE
     Indication: Scan myocardial perfusion
     Dosage: STRESS DOSE AT 09:13
     Route: 042
     Dates: start: 20100602, end: 20100602
  3. MYOVIEW [Concomitant]
     Active Substance: TECHNETIUM TC-99M TETROFOSMIN
     Indication: Scan myocardial perfusion
     Dosage: RESTING DOSE
     Route: 042
     Dates: start: 20100602, end: 20100602
  4. MYOVIEW [Concomitant]
     Active Substance: TECHNETIUM TC-99M TETROFOSMIN
     Indication: Scan myocardial perfusion
     Dosage: STRESS DOSE
     Route: 042
     Dates: start: 20100602, end: 20100602
  5. PERSANTINE [Concomitant]
     Active Substance: DIPYRIDAMOLE
     Indication: Product used for unknown indication
     Route: 042
     Dates: start: 20100602, end: 20100602
  6. AMINOPHYLLINE [Concomitant]
     Active Substance: AMINOPHYLLINE
     Indication: Product used for unknown indication
     Route: 042
     Dates: start: 20100602, end: 20100602
  7. UNSPECIFIED INGREDIENT [Concomitant]
     Active Substance: UNSPECIFIED INGREDIENT
     Indication: Cellulitis
     Dosage: UNK
     Dates: start: 20100527
  8. NEXIUM [Concomitant]
     Active Substance: ESOMEPRAZOLE MAGNESIUM
     Indication: Product used for unknown indication
     Route: 048
  9. SYNTHROID [Concomitant]
     Active Substance: LEVOTHYROXINE SODIUM
     Indication: Product used for unknown indication
     Route: 048
  10. HYDROCHLOROTHIAZIDE [Concomitant]
     Active Substance: HYDROCHLOROTHIAZIDE
     Indication: Product used for unknown indication
     Route: 048
  11. VITAMINS NOS [Concomitant]
     Active Substance: VITAMINS
     Indication: Product use in unapproved indication
     Route: 065
  12. PANADEINE CO (TYLENOL NO. 3) [Concomitant]
     Indication: Product use in unapproved indication
     Route: 065
  13. PANADEINE CO (TYLENOL NO. 3) [Concomitant]
     Indication: Product use in unapproved indication
     Route: 065

REACTIONS (14)
  - Injection site necrosis [Not Recovered/Not Resolved]
  - Renal failure [Recovering/Resolving]
  - Extremity necrosis [Not Recovered/Not Resolved]
  - Toe amputation [Not Recovered/Not Resolved]
  - Skin discolouration [Not Recovered/Not Resolved]
  - Blister [Not Recovered/Not Resolved]
  - Diarrhoea [Not Recovered/Not Resolved]
  - Dizziness [Not Recovered/Not Resolved]
  - Injection site discolouration [Not Recovered/Not Resolved]
  - Joint range of motion decreased [Not Recovered/Not Resolved]
  - Nausea [Not Recovered/Not Resolved]
  - Vomiting [Not Recovered/Not Resolved]
  - Gangrene [Recovering/Resolving]
  - Eschar [Unknown]

NARRATIVE: CASE EVENT DATE: 20100101
